FAERS Safety Report 11111380 (Version 1)
Quarter: 2015Q2

REPORT INFORMATION
  Report Type: Spontaneous
  Country: JP (occurrence: JP)
  Receive Date: 20150513
  Receipt Date: 20150513
  Transmission Date: 20150821
  Serious: Yes (Other)
  Sender: FDA-Public Use
  Company Number: JP-AMGEN-JPNSP2015045653

PATIENT
  Sex: Female

DRUGS (3)
  1. RHEUMATREX [Suspect]
     Active Substance: METHOTREXATE SODIUM
     Indication: PRODUCT USED FOR UNKNOWN INDICATION
     Dosage: UNK
     Route: 048
  2. ENBREL [Suspect]
     Active Substance: ETANERCEPT
     Indication: PRODUCT USED FOR UNKNOWN INDICATION
     Dosage: 50 MG, UNK
     Route: 058
  3. FLORID /00310801/ [Suspect]
     Active Substance: MICONAZOLE
     Indication: OESOPHAGEAL CANDIDIASIS
     Dosage: UNK
     Route: 065

REACTIONS (7)
  - Abdominal distension [Unknown]
  - Oedema [Unknown]
  - Injury [Unknown]
  - Nasopharyngitis [Unknown]
  - Oesophageal candidiasis [Unknown]
  - Constipation [Unknown]
  - Dysphonia [Unknown]

NARRATIVE: CASE EVENT DATE: 2015
